FAERS Safety Report 7312518-2 (Version None)
Quarter: 2011Q1

REPORT INFORMATION
  Report Type: 
  Country: None (occurrence: None)
  Receive Date: 20110119
  Receipt Date: 20100609
  Transmission Date: 20110831
  Serious: No
  Sender: FDA-Public Use
  Company Number: A-US2010-34250

PATIENT
  Age: 71 Year
  Sex: Female
  Weight: 60.5 kg

DRUGS (8)
  1. ASA (ACETYLSYLICYLIC ACID) [Concomitant]
  2. EXTRA STRENGTH TYLENOL [Concomitant]
  3. TRACLEER [Suspect]
     Indication: PULMONARY ARTERIAL HYPERTENSION
     Dosage: 62.5 MG, QD, ORAL
     Route: 048
     Dates: start: 20100111, end: 20100129
  4. FISH OIL (FISH OIL) [Concomitant]
  5. ALDACTONE [Concomitant]
  6. LASIX [Concomitant]
  7. COUMADIN [Concomitant]
  8. SYNTHROID [Concomitant]

REACTIONS (4)
  - DYSPNOEA [None]
  - ASCITES [None]
  - ABDOMINAL DISTENSION [None]
  - OEDEMA PERIPHERAL [None]
